FAERS Safety Report 21123948 (Version 2)
Quarter: 2022Q3

REPORT INFORMATION
  Report Type: Report from Study
  Country: US (occurrence: US)
  Receive Date: 20220725
  Receipt Date: 20220819
  Transmission Date: 20221027
  Serious: Yes (Other)
  Sender: FDA-Public Use
  Company Number: US-GILEAD-2022-0590528

PATIENT
  Sex: Female

DRUGS (3)
  1. AMBRISENTAN [Suspect]
     Active Substance: AMBRISENTAN
     Indication: Product used for unknown indication
     Dosage: 5 MG, QD
     Route: 065
  2. TADALAFIL [Concomitant]
     Active Substance: TADALAFIL
  3. JARDIANCE [Concomitant]
     Active Substance: EMPAGLIFLOZIN

REACTIONS (8)
  - Myocardial necrosis marker increased [Unknown]
  - Non-alcoholic fatty liver [Not Recovered/Not Resolved]
  - Headache [Unknown]
  - Flushing [Unknown]
  - Fatigue [Unknown]
  - Swelling [Unknown]
  - Dizziness [Unknown]
  - Nausea [Unknown]
